FAERS Safety Report 11302671 (Version 1)
Quarter: 2015Q3

REPORT INFORMATION
  Report Type: Spontaneous
  Country: US (occurrence: None)
  Receive Date: 20150723
  Receipt Date: 20150723
  Transmission Date: 20151125
  Serious: Yes (Disabling)
  Sender: FDA-Public Use
  Company Number: None

PATIENT
  Age: 69 Year
  Sex: Male

DRUGS (14)
  1. AMLODIPINE [Concomitant]
     Active Substance: AMLODIPINE BESYLATE
  2. BETAXOLOL. [Concomitant]
     Active Substance: BETAXOLOL
  3. TERAZOSIN [Concomitant]
     Active Substance: TERAZOSIN\TERAZOSIN HYDROCHLORIDE
  4. CALCIUM CITRATE [Concomitant]
     Active Substance: CALCIUM CITRATE
  5. CINNAMON. [Concomitant]
     Active Substance: CINNAMON
  6. BIOTIN [Concomitant]
     Active Substance: BIOTIN
  7. LIZINOPRIL/HCTZ [Concomitant]
  8. ASPIRIN. [Concomitant]
     Active Substance: ASPIRIN
  9. METFORMIN [Concomitant]
     Active Substance: METFORMIN HYDROCHLORIDE
  10. CETIRIZINE [Suspect]
     Active Substance: CETIRIZINE HYDROCHLORIDE
     Indication: SINUS DISORDER
     Dosage: 1 PILL, ONCE DAILY, TAKEN BY MOUTH
     Route: 048
  11. JANUVIA [Concomitant]
     Active Substance: SITAGLIPTIN PHOSPHATE
  12. CETIRIZINE [Suspect]
     Active Substance: CETIRIZINE HYDROCHLORIDE
     Indication: HYPERSENSITIVITY
     Dosage: 1 PILL, ONCE DAILY, TAKEN BY MOUTH
     Route: 048
  13. ATROVASTATIN [Concomitant]
     Active Substance: ATORVASTATIN CALCIUM
  14. GLUCOSAMINE SULFATE [Concomitant]
     Active Substance: GLUCOSAMINE SULFATE

REACTIONS (2)
  - Drug withdrawal syndrome [None]
  - Pruritus generalised [None]

NARRATIVE: CASE EVENT DATE: 20150717
